FAERS Safety Report 9499570 (Version 1)
Quarter: 2013Q1

REPORT INFORMATION
  Report Type: Spontaneous
  Country: US (occurrence: None)
  Receive Date: 20130107
  Receipt Date: 20130107
  Transmission Date: 20140127
  Serious: No
  Sender: FDA-Public Use
  Company Number: PHEH2012US020753

PATIENT
  Age: 47 Year
  Sex: Female
  Weight: 100.4 kg

DRUGS (4)
  1. GILENYA (FINGOLIMOD) CAPSULE, 0.5 MG [Suspect]
     Indication: RELAPSING-REMITTING MULTIPLE SCLEROSIS
     Route: 048
     Dates: start: 201207
  2. AVIL (MEFENAMIC ACID) [Concomitant]
  3. ADVIL PM (DIPHENHYDRAMINE CITRATE, IBUPROFEN) [Concomitant]
  4. ADDERALL (AMFETAMINE ASPARTATE, AMFETAMINE SULFATE, DEXAMFETAMINE SACCHARATE, DEXAMFETAMINE SULFATE) [Concomitant]

REACTIONS (6)
  - Ear infection [None]
  - Sinusitis [None]
  - Fall [None]
  - Balance disorder [None]
  - Hypoaesthesia [None]
  - Asthenia [None]
